FAERS Safety Report 6581266-9 (Version None)
Quarter: 2010Q1

REPORT INFORMATION
  Report Type: 
  Country: None (occurrence: None)
  Receive Date: 20100215
  Receipt Date: 20100208
  Transmission Date: 20100710
  Serious: Yes (Hospitalization, Other)
  Sender: FDA-Public Use
  Company Number: US-TEVA-223642USA

PATIENT
  Age: 6 Year
  Sex: Female

DRUGS (2)
  1. CEFTRIAXONE [Suspect]
     Indication: INFECTION PROPHYLAXIS
     Dosage: 50 MG/KG EVERY 24 HOURS
     Route: 042
  2. MORPHINE [Concomitant]
     Indication: PAIN
     Route: 041

REACTIONS (2)
  - CEREBRAL ISCHAEMIA [None]
  - HAEMOLYSIS [None]
